FAERS Safety Report 11928165 (Version 4)
Quarter: 2022Q2

REPORT INFORMATION
  Report Type: Spontaneous
  Country: GB (occurrence: GB)
  Receive Date: 20160119
  Receipt Date: 20220502
  Transmission Date: 20220720
  Serious: Yes (Death, Congenital Anomaly, Other)
  Sender: FDA-Public Use
  Company Number: GB-BRISTOL-MYERS SQUIBB COMPANY-12621512

PATIENT

DRUGS (8)
  1. RETROVIR [Suspect]
     Active Substance: ZIDOVUDINE
     Indication: Product used for unknown indication
     Dosage: 500 MG, QD
     Route: 064
     Dates: start: 20000122
  2. ZIDOVUDINE [Suspect]
     Active Substance: ZIDOVUDINE
     Indication: Product used for unknown indication
     Dosage: 500 MG, BID
     Route: 064
     Dates: start: 200001
  3. NEVIRAPINE [Suspect]
     Active Substance: NEVIRAPINE
     Indication: HIV infection
     Dosage: 400 MG, 1D
     Route: 064
     Dates: start: 20000122
  4. VIDEX [Suspect]
     Active Substance: DIDANOSINE
     Indication: HIV infection
     Dosage: 400 MG, QD
     Route: 064
     Dates: start: 20040122
  5. DIDANOSINE [Suspect]
     Active Substance: DIDANOSINE
     Indication: HIV infection
     Dosage: 400 MG, 1D
     Route: 064
     Dates: start: 20040122
  6. NORVIR [Suspect]
     Active Substance: RITONAVIR
     Indication: Product used for unknown indication
     Dosage: UNK
     Route: 064
  7. RITONAVIR [Suspect]
     Active Substance: RITONAVIR
     Indication: Product used for unknown indication
     Dosage: 500 MG, QD
     Route: 064
  8. TELBIVUDINE [Suspect]
     Active Substance: TELBIVUDINE
     Indication: Product used for unknown indication
     Dosage: UNK, BID
     Route: 064

REACTIONS (5)
  - Pulmonary hypoplasia [Fatal]
  - Congenital central nervous system anomaly [Fatal]
  - Brain malformation [Unknown]
  - Congenital anomaly [Unknown]
  - Foetal exposure during pregnancy [Unknown]
